FAERS Safety Report 9671562 (Version 2)
Quarter: 2014Q1

REPORT INFORMATION
  Report Type: Report from Study
  Country: JP (occurrence: JP)
  Receive Date: 20131106
  Receipt Date: 20140102
  Transmission Date: 20141002
  Serious: Yes (Hospitalization)
  Sender: FDA-Public Use
  Company Number: JP-PFIZER INC-2013313122

PATIENT
  Age: 38 Year
  Sex: Male
  Weight: 75 kg

DRUGS (9)
  1. XALKORI [Suspect]
     Indication: NON-SMALL CELL LUNG CANCER
     Dosage: 250 MG, 2X/DAY
     Dates: start: 20130118, end: 20130320
  2. XALKORI [Suspect]
     Dosage: 250 MG, 1X/DAY
     Dates: start: 20130321, end: 20130331
  3. XALKORI [Suspect]
     Dosage: 250 MG, 2X/DAY
     Dates: start: 20130401, end: 20130506
  4. XALKORI [Suspect]
     Dosage: 250 MG, 1X/DAY
     Dates: start: 20130507
  5. RIBOL [Concomitant]
     Dosage: 100 MG, 1X/DAY
     Route: 048
  6. TAKEPRON [Concomitant]
     Dosage: 15 MG, 1X/DAY
     Route: 048
  7. SELENICA-R [Concomitant]
     Dosage: 2 G, 1X/DAY
     Route: 048
  8. LIPITOR [Concomitant]
     Dosage: 10 MG, 1X/DAY
     Route: 048
  9. ITRIZOLE [Concomitant]
     Dosage: 10 ML, 2X/DAY

REACTIONS (1)
  - Sepsis [Recovering/Resolving]
